FAERS Safety Report 8169019-1 (Version None)
Quarter: 2012Q1

REPORT INFORMATION
  Report Type: 
  Country: None (occurrence: None)
  Receive Date: 20120227
  Receipt Date: 20120217
  Transmission Date: 20120608
  Serious: Yes (Other)
  Sender: FDA-Public Use
  Company Number: PHHY2011JP76827

PATIENT
  Age: 74 Year
  Sex: Female

DRUGS (4)
  1. OXALIPLATIN [Suspect]
     Indication: COLORECTAL CANCER METASTATIC
     Dosage: 85 MG/M2, UNK
  2. LEUCOVORIN CALCIUM [Suspect]
     Indication: COLORECTAL CANCER METASTATIC
     Dosage: 200 MG/M2, UNK
  3. FLUOROURACIL [Suspect]
     Indication: COLORECTAL CANCER METASTATIC
     Dosage: 400 MG/M2, UNK
     Route: 042
  4. FLUOROURACIL [Suspect]
     Dosage: 2400 MG/M2, UNK

REACTIONS (4)
  - HYPERAMMONAEMIC ENCEPHALOPATHY [None]
  - TREMOR [None]
  - DEPRESSED LEVEL OF CONSCIOUSNESS [None]
  - VOMITING [None]
